FAERS Safety Report 7479452-9 (Version None)
Quarter: 2011Q2

REPORT INFORMATION
  Report Type: 
  Country: None (occurrence: None)
  Receive Date: 20110513
  Receipt Date: 20080121
  Transmission Date: 20111010
  Serious: Yes (Hospitalization, Other)
  Sender: FDA-Public Use
  Company Number: US-BAYER-200812020NA

PATIENT
  Age: 75 Year
  Sex: Male
  Weight: 80 kg

DRUGS (13)
  1. TRASYLOL [Suspect]
     Indication: AORTIC VALVE REPLACEMENT
     Dosage: 200 ML, PRIME
     Route: 042
     Dates: start: 20050202, end: 20050202
  2. TRASYLOL [Suspect]
     Indication: CARDIAC ABLATION
  3. METOPROLOL SUCCINATE [Concomitant]
     Dosage: 50 MG, QD
     Route: 048
  4. FENTANYL [Concomitant]
     Dosage: UNK
     Route: 042
     Dates: start: 20050202
  5. METOPROLOL SUCCINATE [Concomitant]
     Dosage: UNK
     Route: 042
     Dates: start: 20050202
  6. FUROSEMIDE [Concomitant]
  7. LASIX [Concomitant]
     Route: 042
  8. LISINOPRIL [Concomitant]
     Indication: HYPERTENSION
     Dosage: 10 MG, QD
     Route: 048
     Dates: start: 20000801
  9. FUROSEMIDE [Concomitant]
     Dosage: 40 MG, TID
     Route: 048
     Dates: start: 20000801
  10. PANTOPRAZOLE [Concomitant]
     Dosage: 40 MG, QD
     Route: 048
  11. LEVOPHED [Concomitant]
     Dosage: UNK
     Dates: start: 20050202
  12. TRASYLOL [Suspect]
     Indication: CORONARY ARTERY BYPASS
     Dosage: 200ML, THEN INFUSION AT 50 CC/HOUR
     Route: 042
     Dates: start: 20050202, end: 20050202
  13. CEFAZOLIN [Concomitant]
     Dosage: 1 G, UNK
     Route: 042
     Dates: start: 20050202

REACTIONS (9)
  - RENAL FAILURE [None]
  - ANXIETY [None]
  - EMOTIONAL DISTRESS [None]
  - ANHEDONIA [None]
  - DEPRESSION [None]
  - INJURY [None]
  - FEAR [None]
  - ADVERSE EVENT [None]
  - PAIN [None]
